FAERS Safety Report 19879917 (Version 2)
Quarter: 2021Q4

REPORT INFORMATION
  Report Type: 
  Country: GB (occurrence: GB)
  Receive Date: 20210924
  Receipt Date: 20211004
  Transmission Date: 20220303
  Serious: Yes (Disabling, Other)
  Sender: FDA-Public Use
  Company Number: GB-SYNTHON BV-IN51PV21_61244

PATIENT
  Age: 76 Year
  Sex: Male
  Weight: 85.72 kg

DRUGS (1)
  1. TAMSULOSIN [Suspect]
     Active Substance: TAMSULOSIN
     Indication: Ill-defined disorder
     Dosage: 400 MICROGRAM, QD
     Route: 048
     Dates: start: 20210629, end: 20210723

REACTIONS (2)
  - Product use in unapproved indication [Unknown]
  - Pemphigoid [Recovering/Resolving]

NARRATIVE: CASE EVENT DATE: 20210629
